FAERS Safety Report 25641400 (Version 1)
Quarter: 2025Q3

REPORT INFORMATION
  Report Type: Spontaneous
  Country: JP (occurrence: JP)
  Receive Date: 20250804
  Receipt Date: 20250804
  Transmission Date: 20251021
  Serious: Yes (Death, Other)
  Sender: DAIICHI
  Company Number: JP-DSJP-DS-2025-154576-JP

PATIENT
  Sex: Male

DRUGS (1)
  1. ENHERTU [Suspect]
     Active Substance: FAM-TRASTUZUMAB DERUXTECAN-NXKI
     Indication: HER2 positive gastric cancer
     Dosage: 6.4 MG/KG, ONCE EVERY 3 WK
     Route: 041
     Dates: start: 20250709

REACTIONS (4)
  - Febrile neutropenia [Unknown]
  - Metastases to peritoneum [Fatal]
  - Ileus [Fatal]
  - Renal failure [Fatal]

NARRATIVE: CASE EVENT DATE: 20250701
